FAERS Safety Report 8982028 (Version 1)
Quarter: 2012Q4

REPORT INFORMATION
  Report Type: 
  Country: US (occurrence: US)
  Receive Date: 20121212
  Receipt Date: 20121212
  Transmission Date: 20130627
  Serious: Yes (Hospitalization)
  Sender: FDA-Public Use
  Company Number: US-ASTELLAS-1120719

PATIENT
  Sex: Male

DRUGS (3)
  1. TARCEVA [Suspect]
     Indication: HEPATIC NEOPLASM MALIGNANT
     Route: 065
  2. TARCEVA [Suspect]
     Indication: RENAL CANCER
     Route: 065
  3. TARCEVA [Suspect]
     Route: 065
     Dates: start: 20050513

REACTIONS (8)
  - Anaemia [Unknown]
  - Rash [Unknown]
  - Diarrhoea [Unknown]
  - Swelling [Unknown]
  - Swollen tongue [Unknown]
  - Eye swelling [Unknown]
  - Local swelling [Unknown]
  - Swelling face [Unknown]
